FAERS Safety Report 6345438-0 (Version None)
Quarter: 2009Q3

REPORT INFORMATION
  Report Type: 
  Country: None (occurrence: None)
  Receive Date: 20090909
  Receipt Date: 20090903
  Transmission Date: 20100115
  Serious: Yes (Death, Hospitalization)
  Sender: FDA-Public Use
  Company Number: JP-AVENTIS-200911822JP

PATIENT
  Age: 88 Year
  Sex: Male

DRUGS (1)
  1. TAXOTERE [Suspect]
     Route: 041
     Dates: start: 20060713, end: 20060713

REACTIONS (2)
  - NEUTROPHIL COUNT DECREASED [None]
  - RENAL FAILURE [None]
